FAERS Safety Report 21615620 (Version 2)
Quarter: 2023Q4

REPORT INFORMATION
  Report Type: Spontaneous
  Country: US (occurrence: US)
  Receive Date: 20221118
  Receipt Date: 20231020
  Transmission Date: 20240109
  Serious: Yes (Other)
  Sender: FDA-Public Use
  Company Number: US-PFIZER INC-202201307986

PATIENT
  Age: 70 Year
  Sex: Female
  Weight: 58.97 kg

DRUGS (2)
  1. XELJANZ XR [Suspect]
     Active Substance: TOFACITINIB CITRATE
     Indication: Rheumatoid arthritis
     Dosage: 11 MG, 1X/DAY
     Dates: start: 2012, end: 202211
  2. LISINOPRIL [Concomitant]
     Active Substance: LISINOPRIL
     Indication: Hypertension
     Dosage: 5 MG, 1X/DAY
     Dates: start: 202209

REACTIONS (7)
  - Skin cancer [Recovering/Resolving]
  - Punctate keratitis [Recovered/Resolved]
  - Bacterial gingivitis [Unknown]
  - Tooth loss [Unknown]
  - Lymphadenopathy [Unknown]
  - Hypertension [Unknown]
  - Increased steroid activity [Unknown]

NARRATIVE: CASE EVENT DATE: 20220101
